FAERS Safety Report 11314625 (Version 12)
Quarter: 2018Q4

REPORT INFORMATION
  Report Type: Report from Study
  Country: CA (occurrence: CA)
  Receive Date: 20150727
  Receipt Date: 20181224
  Transmission Date: 20190204
  Serious: Yes (Death)
  Sender: FDA-Public Use
  Company Number: CA-ASTELLAS-2015US026437

PATIENT

DRUGS (4)
  1. ERLOTINIB [Suspect]
     Active Substance: ERLOTINIB
     Route: 048
  2. ERLOTINIB [Suspect]
     Active Substance: ERLOTINIB
     Route: 048
  3. ERLOTINIB [Suspect]
     Active Substance: ERLOTINIB
     Route: 048
  4. ERLOTINIB [Suspect]
     Active Substance: ERLOTINIB
     Indication: SQUAMOUS CELL CARCINOMA OF LUNG
     Route: 048

REACTIONS (1)
  - Peritonitis [Fatal]
